FAERS Safety Report 4489452-9 (Version None)
Quarter: 2004Q4

REPORT INFORMATION
  Report Type: 
  Country: None (occurrence: None)
  Receive Date: 20041028
  Receipt Date: 20041018
  Transmission Date: 20050328
  Serious: Yes (Hospitalization, Other)
  Sender: FDA-Public Use
  Company Number: HQWYE877018OCT04

PATIENT
  Age: 39 Year
  Sex: Male

DRUGS (4)
  1. INIPOMP            (PANTOPRAZOLE, DELAYED RELEASE) [Suspect]
     Dosage: 40 MG ^SOME TIME (S)^ ORAL
     Route: 048
     Dates: start: 20020605
  2. ARTANE [Suspect]
     Dosage: 10 MG 1X PER 1 DAY ORAL
     Route: 048
     Dates: start: 20020605
  3. CELANCE (PERGOLIDE MESILATE,) [Suspect]
     Dosage: ^SOME DF SOME TIME (S)^ ORAL
     Route: 048
     Dates: start: 20020605
  4. MANTADIX           (AMANTADINE HYDROCHLORIDE,) [Suspect]
     Dosage: 100 MG ^SOME TIME (S)^ ORAL
     Route: 048
     Dates: start: 20020605

REACTIONS (1)
  - VENTRICULAR FIBRILLATION [None]
